FAERS Safety Report 5508387-3 (Version None)
Quarter: 2007Q4

REPORT INFORMATION
  Report Type: 
  Country: None (occurrence: None)
  Receive Date: 20071107
  Receipt Date: 20071030
  Transmission Date: 20080405
  Serious: Yes (Other)
  Sender: FDA-Public Use
  Company Number: PHHO2007MX18119

PATIENT
  Age: 60 Year
  Sex: Female

DRUGS (3)
  1. DIOVAN HCT [Suspect]
     Indication: HYPERTENSION
     Dosage: 160/12.5MG DAILY
     Route: 048
     Dates: start: 20070901
  2. DILTIAZEM [Concomitant]
     Indication: HYPERTENSION
  3. ALDACTONE [Concomitant]

REACTIONS (1)
  - PULMONARY THROMBOSIS [None]
